FAERS Safety Report 4727229-7 (Version None)
Quarter: 2005Q3

REPORT INFORMATION
  Report Type: 
  Country: None (occurrence: None)
  Receive Date: 20050726
  Receipt Date: 20050714
  Transmission Date: 20060218
  Serious: Yes (Hospitalization, Disabling)
  Sender: FDA-Public Use
  Company Number: 2005092033

PATIENT
  Age: 52 Year
  Sex: Male

DRUGS (1)
  1. NORVASC [Suspect]
     Indication: HYPERTENSION
     Dosage: (5 MG)

REACTIONS (5)
  - ABASIA [None]
  - BEDRIDDEN [None]
  - LIFE SUPPORT [None]
  - PRURITUS [None]
  - STEVENS-JOHNSON SYNDROME [None]
